FAERS Safety Report 9363805 (Version 2)
Quarter: 2013Q3

REPORT INFORMATION
  Report Type: Report from Study
  Country: CA (occurrence: CA)
  Receive Date: 20130624
  Receipt Date: 20130729
  Transmission Date: 20140515
  Serious: Yes (Hospitalization)
  Sender: FDA-Public Use
  Company Number: CA-UCBSA-087207

PATIENT
  Age: 63 Year
  Sex: Female
  Weight: 80 kg

DRUGS (6)
  1. CIMZIA [Suspect]
     Indication: RHEUMATOID ARTHRITIS
     Route: 058
     Dates: start: 20130509, end: 20130604
  2. FOLIC ACID [Concomitant]
     Indication: RHEUMATOID ARTHRITIS
     Route: 048
     Dates: start: 2011
  3. SYNTROID [Concomitant]
     Indication: HYPOTHYROIDISM
     Route: 048
  4. GLYBURIDE [Concomitant]
     Indication: DIABETES MELLITUS
     Route: 048
  5. MONOCOR [Concomitant]
     Indication: HYPERTENSION
     Route: 048
  6. MTX [Concomitant]
     Indication: RHEUMATOID ARTHRITIS
     Route: 058

REACTIONS (6)
  - Wrist fracture [Not Recovered/Not Resolved]
  - Hot flush [Recovering/Resolving]
  - Hypoaesthesia oral [Recovering/Resolving]
  - Hypersensitivity [Unknown]
  - Hyperventilation [Unknown]
  - Anxiety [Unknown]
